FAERS Safety Report 5085531-6 (Version None)
Quarter: 2006Q3

REPORT INFORMATION
  Report Type: 
  Country: None (occurrence: None)
  Receive Date: 20060817
  Receipt Date: 20060621
  Transmission Date: 20061208
  Serious: Yes (Other)
  Sender: FDA-Public Use
  Company Number: CHPA2006US06504

PATIENT
  Age: 20 Year
  Sex: Male
  Weight: 99.8 kg

DRUGS (1)
  1. NICOTINE [Suspect]
     Indication: SMOKING CESSATION THERAPY
     Dosage: 21 MG, QD, TRANSDERMAL
     Route: 062
     Dates: start: 20060611, end: 20060621

REACTIONS (2)
  - RASH ERYTHEMATOUS [None]
  - RASH PAPULAR [None]
